FAERS Safety Report 22184100 (Version 1)
Quarter: 2023Q2

REPORT INFORMATION
  Report Type: Spontaneous
  Country: TH (occurrence: TH)
  Receive Date: 20230407
  Receipt Date: 20230407
  Transmission Date: 20230722
  Serious: Yes (Hospitalization, Other)
  Sender: FDA-Public Use
  Company Number: TH-ALKEM LABORATORIES LIMITED-TH-ALKEM-2022-15316

PATIENT
  Age: 20 Year
  Sex: Male

DRUGS (10)
  1. CLOZAPINE [Suspect]
     Active Substance: CLOZAPINE
     Indication: Schizophrenia
     Dosage: 750 MILLIGRAM
     Route: 065
  2. CLOZAPINE [Suspect]
     Active Substance: CLOZAPINE
     Dosage: 450 MILLIGRAM
     Route: 065
  3. CLOZAPINE [Suspect]
     Active Substance: CLOZAPINE
     Dosage: 200 MILLIGRAM, QD, TRITRATED UP
     Route: 065
  4. CLOZAPINE [Suspect]
     Active Substance: CLOZAPINE
     Dosage: 125 MILLIGRAM, QD
     Route: 065
  5. CLOZAPINE [Suspect]
     Active Substance: CLOZAPINE
     Dosage: 100 MILLIGRAM, QD
     Route: 065
  6. CLOZAPINE [Suspect]
     Active Substance: CLOZAPINE
     Dosage: 25 MILLIGRAM, QD
     Route: 065
  7. LURASIDONE [Suspect]
     Active Substance: LURASIDONE
     Indication: Schizophrenia
     Dosage: 80 MILLIGRAM, QD
     Route: 065
  8. LURASIDONE [Suspect]
     Active Substance: LURASIDONE
     Dosage: 240 MILLIGRAM, QD, TITRATED UP
     Route: 065
  9. OLANZAPINE [Suspect]
     Active Substance: OLANZAPINE
     Indication: Schizophrenia
     Dosage: 10 MILLIGRAM
     Route: 065
  10. OLANZAPINE [Suspect]
     Active Substance: OLANZAPINE
     Dosage: 40 MILLIGRAM, QD
     Route: 065

REACTIONS (3)
  - Eosinophilia [Unknown]
  - Myocarditis [Recovered/Resolved]
  - Drug ineffective [Unknown]
